FAERS Safety Report 11642361 (Version 2)
Quarter: 2015Q4

REPORT INFORMATION
  Report Type: Report from Study
  Country: US (occurrence: US)
  Receive Date: 20151019
  Receipt Date: 20151112
  Transmission Date: 20160304
  Serious: Yes (Other)
  Sender: FDA-Public Use
  Company Number: US-GILEAD-2015-0177435

PATIENT
  Age: 58 Year
  Sex: Male

DRUGS (1)
  1. EMTRICITABINE/TENOFOVIR DISOPROXIL FUMARATE [Suspect]
     Active Substance: EMTRICITABINE\TENOFOVIR DISOPROXIL
     Indication: HEPATITIS B
     Dosage: 500 MG, UNK
     Route: 048
     Dates: start: 20120302

REACTIONS (6)
  - Portal vein thrombosis [Unknown]
  - Pancreatic cyst [Unknown]
  - Hepatic cirrhosis [Unknown]
  - Neutropenia [Unknown]
  - Platelet count decreased [Unknown]
  - Off label use [Unknown]
